FAERS Safety Report 21797208 (Version 13)
Quarter: 2023Q2

REPORT INFORMATION
  Report Type: Report from Study
  Country: IE (occurrence: None)
  Receive Date: 20221230
  Receipt Date: 20230608
  Transmission Date: 20230722
  Serious: Yes (Hospitalization)
  Sender: FDA-Public Use
  Company Number: IE-ABBVIE-4239047

PATIENT
  Age: 65 Year
  Sex: Female

DRUGS (21)
  1. ENTACAPONE [Suspect]
     Active Substance: ENTACAPONE
     Indication: Product used for unknown indication
     Dosage: AT 13.00
  2. CARBIDOPA\LEVODOPA [Suspect]
     Active Substance: CARBIDOPA\LEVODOPA
     Indication: Parkinson^s disease
     Dosage: MORNING DOSE 10.4ML; CONTINUOUS DOSE 2.2ML/PH; EXTRA DOSE 1.2ML
  3. CARBIDOPA\LEVODOPA [Suspect]
     Active Substance: CARBIDOPA\LEVODOPA
     Dosage: 1 CASSETTE, CONTINUOUS
     Dates: start: 20210428
  4. CARBIDOPA\LEVODOPA [Suspect]
     Active Substance: CARBIDOPA\LEVODOPA
  5. CARBIDOPA\LEVODOPA [Suspect]
     Active Substance: CARBIDOPA\LEVODOPA
     Dosage: FREQUENCY TEXT: CONTINUOUS
  6. CARBIDOPA\LEVODOPA [Suspect]
     Active Substance: CARBIDOPA\LEVODOPA
     Dosage: CONTINUOUS DOSE 2.3ML / PH
  7. CARBIDOPA\LEVODOPA [Suspect]
     Active Substance: CARBIDOPA\LEVODOPA
     Dosage: CONTINUOUS
  8. CARBIDOPA\LEVODOPA [Suspect]
     Active Substance: CARBIDOPA\LEVODOPA
     Dosage: CONTINUOUS DOSE 2.3ML / PH
  9. CARBIDOPA\LEVODOPA [Suspect]
     Active Substance: CARBIDOPA\LEVODOPA
     Dosage: CONTINUOUS DOSE 2.3ML / PH, FREQUENCY TEXT: CONTINUOUS
  10. STALEVO [Concomitant]
     Active Substance: CARBIDOPA\ENTACAPONE\LEVODOPA
  11. XANAX [Concomitant]
     Active Substance: ALPRAZOLAM
  12. XANAX [Concomitant]
     Active Substance: ALPRAZOLAM
  13. XANAX [Concomitant]
     Active Substance: ALPRAZOLAM
  14. XANAX [Concomitant]
     Active Substance: ALPRAZOLAM
  15. ROTIGOTINE [Concomitant]
     Active Substance: ROTIGOTINE
  16. MIRTAZAPINE [Concomitant]
     Active Substance: MIRTAZAPINE
  17. MIRTAZAPINE [Concomitant]
     Active Substance: MIRTAZAPINE
  18. SINEMET [Concomitant]
     Active Substance: CARBIDOPA\LEVODOPA
     Dosage: NIGHT, ROA-OTHER; CONTROLLED RELEASE
  19. SINEMET [Concomitant]
     Active Substance: CARBIDOPA\LEVODOPA
     Dosage: FREQUENCY TEXT: NIGHT
  20. ESCITALOPRAM [Concomitant]
     Active Substance: ESCITALOPRAM OXALATE
     Dosage: NIGHT, ROA- OTHER
  21. LACTULOSE [Concomitant]
     Active Substance: LACTULOSE

REACTIONS (16)
  - Abdominal pain upper [Recovered/Resolved]
  - Vomiting [Recovered/Resolved]
  - Abdominal pain [Recovered/Resolved]
  - Stoma site discharge [Not Recovered/Not Resolved]
  - Depressed mood [Recovered/Resolved]
  - Mobility decreased [Recovered/Resolved]
  - On and off phenomenon [Recovered/Resolved]
  - Nausea [Not Recovered/Not Resolved]
  - Weight decreased [Not Recovered/Not Resolved]
  - Decreased appetite [Not Recovered/Not Resolved]
  - Confusional state [Not Recovered/Not Resolved]
  - Dyskinesia [Recovering/Resolving]
  - Incoherent [Not Recovered/Not Resolved]
  - Gastric infection [Not Recovered/Not Resolved]
  - Cognitive disorder [Not Recovered/Not Resolved]
  - Amnesia [Recovering/Resolving]

NARRATIVE: CASE EVENT DATE: 20221201
